FAERS Safety Report 15784469 (Version 1)
Quarter: 2019Q1

REPORT INFORMATION
  Report Type: Spontaneous
  Country: FR (occurrence: FR)
  Receive Date: 20190103
  Receipt Date: 20190103
  Transmission Date: 20190417
  Serious: Yes (Other)
  Sender: FDA-Public Use
  Company Number: FR-ACCORD-099616

PATIENT
  Age: 80 Year
  Sex: Male
  Weight: 76 kg

DRUGS (2)
  1. ALLOPURINOL. [Suspect]
     Active Substance: ALLOPURINOL
     Indication: GOUT
     Route: 048
  2. ADENURIC [Suspect]
     Active Substance: FEBUXOSTAT
     Indication: GOUT
     Route: 048

REACTIONS (3)
  - Rash [Recovered/Resolved]
  - Therapeutic product cross-reactivity [Unknown]
  - Pruritus [Recovered/Resolved]

NARRATIVE: CASE EVENT DATE: 201801
